FAERS Safety Report 4750424-8 (Version None)
Quarter: 2005Q3

REPORT INFORMATION
  Report Type: 
  Country: None (occurrence: None)
  Receive Date: 20050819
  Receipt Date: 20050809
  Transmission Date: 20060218
  Serious: Yes (Hospitalization)
  Sender: FDA-Public Use
  Company Number: HQWYE0804209AUG05

PATIENT
  Age: 46 Year
  Sex: Male

DRUGS (2)
  1. CORDARONE [Suspect]
     Dosage: SEE IMAGE
     Route: 042
     Dates: start: 20050712, end: 20050712
  2. CORDARONE [Suspect]
     Dosage: SEE IMAGE
     Route: 042
     Dates: start: 20050712, end: 20050713

REACTIONS (1)
  - INJECTION SITE EXTRAVASATION [None]
